FAERS Safety Report 9172935 (Version 2)
Quarter: 2013Q4

REPORT INFORMATION
  Report Type: Spontaneous
  Country: US (occurrence: US)
  Receive Date: 20120911
  Receipt Date: 20131101
  Transmission Date: 20140711
  Serious: No
  Sender: FDA-Public Use
  Company Number: US-009507513-1209USA000638

PATIENT
  Age: 54 Year
  Sex: Female

DRUGS (3)
  1. ZIOPTAN [Suspect]
     Indication: GLAUCOMA
     Dosage: 1 GTT, QD, RIGHT EYE
     Route: 047
     Dates: start: 20120823
  2. ZIOPTAN [Suspect]
     Dosage: 1 GTT, QOD, LEFT EYE
     Route: 047
     Dates: start: 20120823
  3. SYSTANE [Concomitant]
     Route: 047

REACTIONS (3)
  - Conjunctival hyperaemia [Not Recovered/Not Resolved]
  - Eye pain [Not Recovered/Not Resolved]
  - Eye pruritus [Not Recovered/Not Resolved]
